FAERS Safety Report 13639020 (Version 1)
Quarter: 2017Q2

REPORT INFORMATION
  Report Type: Spontaneous
  Country: US (occurrence: US)
  Receive Date: 20170609
  Receipt Date: 20170609
  Transmission Date: 20170830
  Serious: Yes (Other)
  Sender: FDA-Public Use
  Company Number: US-JAZZ-2017-US-007141

PATIENT
  Sex: Male

DRUGS (21)
  1. DIAZEPAM. [Concomitant]
     Active Substance: DIAZEPAM
  2. ESCITALOPRAM [Concomitant]
     Active Substance: ESCITALOPRAM OXALATE
  3. BACTRIM [Concomitant]
     Active Substance: SULFAMETHOXAZOLE\TRIMETHOPRIM
  4. ATORVASTATIN [Concomitant]
     Active Substance: ATORVASTATIN
  5. GABAPENTIN. [Concomitant]
     Active Substance: GABAPENTIN
  6. CIPRO [Concomitant]
     Active Substance: CIPROFLOXACIN HYDROCHLORIDE
  7. TRAMADOL HCL [Concomitant]
     Active Substance: TRAMADOL HYDROCHLORIDE
  8. ZYRTEC [Concomitant]
     Active Substance: CETIRIZINE HYDROCHLORIDE
  9. CALCIUM CITRATE WITH VITAMIN D3 [Concomitant]
  10. XYREM [Suspect]
     Active Substance: SODIUM OXYBATE
     Indication: NARCOLEPSY
     Dosage: 2.25G, BID
     Route: 048
     Dates: start: 200706, end: 2007
  11. XYREM [Suspect]
     Active Substance: SODIUM OXYBATE
     Dosage: 4.5G, BID
     Route: 048
     Dates: start: 200803
  12. LISINOPRIL. [Concomitant]
     Active Substance: LISINOPRIL
  13. LYRICA [Concomitant]
     Active Substance: PREGABALIN
  14. PREDNISONE. [Concomitant]
     Active Substance: PREDNISONE
  15. TYLENOL WITH CODEINE [Concomitant]
     Active Substance: ACETAMINOPHEN\CODEINE PHOSPHATE
  16. HYDROCODONE [Concomitant]
     Active Substance: HYDROCODONE
  17. RITALIN [Concomitant]
     Active Substance: METHYLPHENIDATE HYDROCHLORIDE
  18. TESTOSTERONE. [Concomitant]
     Active Substance: TESTOSTERONE
  19. XYREM [Suspect]
     Active Substance: SODIUM OXYBATE
     Dosage: 3 G, BID
     Route: 048
     Dates: start: 200801, end: 2008
  20. MUPIROCIN. [Concomitant]
     Active Substance: MUPIROCIN
  21. TYLENOL EXTRA STRENGTH [Concomitant]
     Active Substance: ACETAMINOPHEN

REACTIONS (3)
  - Tooth disorder [Unknown]
  - Visual acuity reduced [Not Recovered/Not Resolved]
  - Retinal detachment [Unknown]

NARRATIVE: CASE EVENT DATE: 2016
